FAERS Safety Report 14728888 (Version 1)
Quarter: 2018Q2

REPORT INFORMATION
  Report Type: Spontaneous
  Country: CA (occurrence: CA)
  Receive Date: 20180406
  Receipt Date: 20180406
  Transmission Date: 20180711
  Serious: Yes (Other)
  Sender: FDA-Public Use
  Company Number: CA-SA-2018SA094864

PATIENT
  Age: 60 Year
  Sex: Male
  Weight: 132 kg

DRUGS (37)
  1. INSULIN GLARGINE [Suspect]
     Active Substance: INSULIN GLARGINE
     Route: 058
  2. GLUMETZA [Concomitant]
     Active Substance: METFORMIN HYDROCHLORIDE
     Route: 065
  3. REACTINE [CETIRIZINE HYDROCHLORIDE] [Concomitant]
     Active Substance: CETIRIZINE HYDROCHLORIDE
     Route: 065
  4. TRAJENTA [Concomitant]
     Active Substance: LINAGLIPTIN
     Route: 065
  5. ELTROXIN [Concomitant]
     Active Substance: LEVOTHYROXINE
     Route: 065
  6. TICAGRELOR. [Concomitant]
     Active Substance: TICAGRELOR
     Route: 048
  7. TRAJENTA [Suspect]
     Active Substance: LINAGLIPTIN
     Indication: TYPE 2 DIABETES MELLITUS
     Route: 065
  8. ANDROGEL [Concomitant]
     Active Substance: TESTOSTERONE
     Route: 065
  9. CORTEF [Concomitant]
     Active Substance: HYDROCORTISONE
     Route: 048
  10. MAGNESIUM GLYCENATE [Concomitant]
     Route: 065
  11. NORVASC [Concomitant]
     Active Substance: AMLODIPINE BESYLATE
     Route: 048
  12. TARGIN [Concomitant]
     Active Substance: NALOXONE HYDROCHLORIDE\OXYCODONE HYDROCHLORIDE
     Route: 065
  13. VITAMIN E [Concomitant]
     Active Substance: .ALPHA.-TOCOPHEROL
     Route: 065
  14. BASAGLAR [Concomitant]
     Active Substance: INSULIN GLARGINE
     Route: 065
  15. METOPROLOL. [Concomitant]
     Active Substance: METOPROLOL
     Route: 048
  16. NORVASC [Concomitant]
     Active Substance: AMLODIPINE BESYLATE
     Route: 048
  17. SYNTHROID [Concomitant]
     Active Substance: LEVOTHYROXINE SODIUM
     Route: 048
  18. ACETYLSALICYLIC ACID [Concomitant]
     Active Substance: ASPIRIN
     Route: 065
  19. PANTOPRAZOLE [Concomitant]
     Active Substance: PANTOPRAZOLE
     Route: 048
  20. DULCOLAX NOS [Concomitant]
     Active Substance: BISACODYL OR DOCUSATE SODIUM
     Route: 065
  21. GLUCOBAY [Concomitant]
     Active Substance: ACARBOSE
     Route: 048
  22. LIOTHYRONINE SODIUM. [Concomitant]
     Active Substance: LIOTHYRONINE SODIUM
     Route: 065
  23. OLMETEC [Concomitant]
     Active Substance: OLMESARTAN MEDOXOMIL
     Route: 048
  24. SOLU-MEDROL [Concomitant]
     Active Substance: METHYLPREDNISOLONE SODIUM SUCCINATE
     Route: 065
  25. SOMATROPIN. [Concomitant]
     Active Substance: SOMATROPIN
     Route: 058
  26. VITAMIN D3 [Concomitant]
     Active Substance: CHOLECALCIFEROL
     Route: 065
  27. ZINC. [Concomitant]
     Active Substance: ZINC
     Route: 065
  28. AXIRON [Concomitant]
     Active Substance: TESTOSTERONE
  29. CLOBETASOL [Concomitant]
     Active Substance: CLOBETASOL
  30. GABAPENTIN. [Concomitant]
     Active Substance: GABAPENTIN
     Route: 065
  31. LANTUS [Concomitant]
     Active Substance: INSULIN GLARGINE
     Dosage: FORM: SUBCUTANEOUS SOLUTION
     Route: 065
  32. METOPROLOL. [Concomitant]
     Active Substance: METOPROLOL
     Route: 048
  33. VICTOZA [Concomitant]
     Active Substance: LIRAGLUTIDE
  34. CORTEF [Concomitant]
     Active Substance: HYDROCORTISONE
     Route: 048
  35. DIAZEPAM. [Concomitant]
     Active Substance: DIAZEPAM
     Route: 065
  36. ROSUVASTATIN CALCIUM. [Concomitant]
     Active Substance: ROSUVASTATIN CALCIUM
     Route: 048
  37. VITAMIN D3 [Concomitant]
     Active Substance: CHOLECALCIFEROL
     Route: 065

REACTIONS (44)
  - Abscess of salivary gland [Not Recovered/Not Resolved]
  - Coronary artery disease [Not Recovered/Not Resolved]
  - Drug intolerance [Not Recovered/Not Resolved]
  - Growth hormone deficiency [Not Recovered/Not Resolved]
  - Hypoglycaemia [Not Recovered/Not Resolved]
  - Multiple allergies [Not Recovered/Not Resolved]
  - Dizziness [Not Recovered/Not Resolved]
  - Eating disorder [Not Recovered/Not Resolved]
  - Glycosylated haemoglobin increased [Not Recovered/Not Resolved]
  - Hypertension [Not Recovered/Not Resolved]
  - Hypopituitarism [Not Recovered/Not Resolved]
  - Neurodermatitis [Not Recovered/Not Resolved]
  - Osteonecrosis [Not Recovered/Not Resolved]
  - Anaemia [Not Recovered/Not Resolved]
  - Skin wound [Not Recovered/Not Resolved]
  - Apnoea test [Not Recovered/Not Resolved]
  - Cataract [Not Recovered/Not Resolved]
  - Haemorrhoids [Not Recovered/Not Resolved]
  - Insulin-like growth factor increased [Not Recovered/Not Resolved]
  - Angioplasty [Not Recovered/Not Resolved]
  - Blood glucose increased [Not Recovered/Not Resolved]
  - Central obesity [Not Recovered/Not Resolved]
  - Chronic kidney disease [Not Recovered/Not Resolved]
  - Disability [Not Recovered/Not Resolved]
  - Obesity [Not Recovered/Not Resolved]
  - Rathke^s cleft cyst [Not Recovered/Not Resolved]
  - Syringe issue [Not Recovered/Not Resolved]
  - Empty sella syndrome [Unknown]
  - Gastrooesophageal reflux disease [Not Recovered/Not Resolved]
  - Hip arthroplasty [Not Recovered/Not Resolved]
  - Hypogonadism [Not Recovered/Not Resolved]
  - Hypothyroidism [Not Recovered/Not Resolved]
  - Microalbuminuria [Not Recovered/Not Resolved]
  - Migraine [Not Recovered/Not Resolved]
  - Pain [Not Recovered/Not Resolved]
  - Erectile dysfunction [Unknown]
  - Osteoporosis [Not Recovered/Not Resolved]
  - Fatigue [Not Recovered/Not Resolved]
  - Infection [Not Recovered/Not Resolved]
  - Large intestine polyp [Not Recovered/Not Resolved]
  - Skin disorder [Not Recovered/Not Resolved]
  - Skin lesion [Not Recovered/Not Resolved]
  - Urine albumin/creatinine ratio [Not Recovered/Not Resolved]
  - Weight increased [Not Recovered/Not Resolved]
